FAERS Safety Report 15814652 (Version 2)
Quarter: 2019Q2

REPORT INFORMATION
  Report Type: Report from Study
  Country: US (occurrence: US)
  Receive Date: 20190111
  Receipt Date: 20190412
  Transmission Date: 20190711
  Serious: No
  Sender: FDA-Public Use
  Company Number: US-SA-2019SA008321

PATIENT
  Age: 57 Year
  Sex: Female

DRUGS (2)
  1. DUPILUMAB [Suspect]
     Active Substance: DUPILUMAB
     Dosage: 300 MG, QOW
     Route: 058
     Dates: start: 20190104
  2. DUPILUMAB [Suspect]
     Active Substance: DUPILUMAB
     Indication: DERMATITIS ATOPIC
     Dosage: 600 MG, 1X
     Route: 058
     Dates: start: 20181221, end: 20181221

REACTIONS (5)
  - Rash erythematous [Unknown]
  - Pain [Unknown]
  - Blister [Unknown]
  - Nasal congestion [Unknown]
  - Urticaria [Unknown]

NARRATIVE: CASE EVENT DATE: 2019
